FAERS Safety Report 7226290-8 (Version None)
Quarter: 2011Q1

REPORT INFORMATION
  Report Type: 
  Country: None (occurrence: None)
  Receive Date: 20110114
  Receipt Date: 20110106
  Transmission Date: 20110831
  Serious: Yes (Death, Hospitalization)
  Sender: FDA-Public Use
  Company Number: PHHY2011TR01750

PATIENT
  Sex: Female
  Weight: 53 kg

DRUGS (2)
  1. CGS 20267 [Suspect]
     Indication: BREAST CANCER
     Dosage: 2.5 MG, DAILY
     Route: 048
     Dates: start: 20080717, end: 20100311
  2. ANTIHYPERTENSIVES [Concomitant]

REACTIONS (2)
  - SEPSIS [None]
  - RENAL FAILURE [None]
